FAERS Safety Report 7916776 (Version 2)
Quarter: 2020Q3

REPORT INFORMATION
  Report Type: Spontaneous
  Country: JP (occurrence: JP)
  Receive Date: 20110427
  Receipt Date: 20110504
  Transmission Date: 20201104
  Serious: Yes (Hospitalization)
  Sender: FDA-Public Use
  Company Number: JP-JNJFOC-20110407016

PATIENT
  Age: 34 Year
  Sex: Male
  Weight: 51 kg

DRUGS (10)
  1. REMICADE [Suspect]
     Active Substance: INFLIXIMAB
     Route: 042
  2. UNSPECIFIED INGREDIENT [Suspect]
     Active Substance: UNSPECIFIED INGREDIENT
     Indication: NUTRITIONAL SUPPLEMENTATION
     Route: 048
  3. REMICADE [Suspect]
     Active Substance: INFLIXIMAB
     Route: 042
  4. HERBAL NOS [Suspect]
     Active Substance: HERBALS
     Indication: ABDOMINAL DISTENSION
     Dosage: 7.5 GM / DAY
     Route: 048
  5. MOSAPRIDE CITRATE [Suspect]
     Active Substance: MOSAPRIDE CITRATE
     Indication: ABDOMINAL DISTENSION
     Route: 048
  6. REMICADE [Suspect]
     Active Substance: INFLIXIMAB
     Indication: CROHN^S DISEASE
     Route: 042
  7. ASCORBIC ACID\CALCIUM PANTOTHENATE [Suspect]
     Active Substance: ASCORBIC ACID\CALCIUM PANTOTHENATE
     Indication: ANAEMIA PROPHYLAXIS
     Route: 048
  8. REMICADE [Suspect]
     Active Substance: INFLIXIMAB
     Route: 042
  9. FERROUS SULFATE. [Suspect]
     Active Substance: FERROUS SULFATE
     Indication: ANAEMIA
     Route: 048
  10. REMICADE [Suspect]
     Active Substance: INFLIXIMAB
     Dosage: 5 INFUSION ON AN UNKNOWN DATE
     Route: 042

REACTIONS (3)
  - General physical health deterioration [Unknown]
  - Dizziness [Unknown]
  - Pancytopenia [Recovered/Resolved]

NARRATIVE: CASE EVENT DATE: 20100924
